APPROVED DRUG PRODUCT: BUPROPION HYDROCHLORIDE
Active Ingredient: BUPROPION HYDROCHLORIDE
Strength: 300MG
Dosage Form/Route: TABLET, EXTENDED RELEASE;ORAL
Application: A090693 | Product #002 | TE Code: AB3
Applicant: LUPIN LTD
Approved: Apr 6, 2017 | RLD: No | RS: No | Type: RX